FAERS Safety Report 15306571 (Version 1)
Quarter: 2018Q4

REPORT INFORMATION
  Report Type: Report from Study
  Country: ES (occurrence: ES)
  Receive Date: 20180822
  Receipt Date: 20180822
  Transmission Date: 20190204
  Serious: Yes (Death)
  Sender: FDA-Public Use
  Company Number: ES-TEVA-2018-ES-944881

PATIENT
  Age: 74 Year
  Sex: Female

DRUGS (7)
  1. MEROPENEM (7155A) [Suspect]
     Active Substance: MEROPENEM
     Indication: BACTERAEMIA
     Dosage: 3 GRAM DAILY;
     Route: 042
     Dates: start: 20151119, end: 20151211
  2. MIRTAZAPINA (2704A) [Suspect]
     Active Substance: MIRTAZAPINE
     Route: 048
     Dates: start: 201512
  3. ERITROMICINA (1419A) [Suspect]
     Active Substance: ERYTHROMYCIN
     Indication: BACTERAEMIA
     Route: 042
     Dates: start: 20151201, end: 20151222
  4. TAZOCEL [Suspect]
     Active Substance: PIPERACILLIN SODIUM\TAZOBACTAM SODIUM
     Indication: BACTERAEMIA
     Route: 042
     Dates: start: 20151102, end: 20151211
  5. METAMIZOL (111A) [Suspect]
     Active Substance: METAMIZOL SODIUM
     Indication: PAIN
     Dosage: 6 GRAM DAILY;
     Route: 042
     Dates: start: 20151208, end: 20151217
  6. VANCOMICINA (3197A) [Suspect]
     Active Substance: VANCOMYCIN
     Indication: BACTERAEMIA
     Dosage: 2 GRAM DAILY;
     Route: 042
     Dates: start: 20151117, end: 20151211
  7. FLUCONAZOL (2432A) [Suspect]
     Active Substance: FLUCONAZOLE
     Dosage: 200 MILLIGRAM DAILY;
     Route: 042
     Dates: start: 20151130, end: 20151211

REACTIONS (1)
  - Toxic epidermal necrolysis [Fatal]

NARRATIVE: CASE EVENT DATE: 20151214
